FAERS Safety Report 24685663 (Version 1)
Quarter: 2024Q4

REPORT INFORMATION
  Report Type: Spontaneous
  Country: PL (occurrence: PL)
  Receive Date: 20241202
  Receipt Date: 20241202
  Transmission Date: 20250115
  Serious: Yes (Other)
  Sender: GILEAD
  Company Number: PL-GILEAD-2024-0695480

PATIENT
  Age: 54 Year
  Sex: Female

DRUGS (1)
  1. TRODELVY [Suspect]
     Active Substance: SACITUZUMAB GOVITECAN-HZIY
     Indication: Product used for unknown indication
     Dosage: UNK, CYCLICAL
     Route: 065
     Dates: start: 20241113

REACTIONS (3)
  - Neutropenia [Unknown]
  - Diarrhoea [Recovered/Resolved]
  - Anaemia [Unknown]
